FAERS Safety Report 17274457 (Version 1)
Quarter: 2020Q1

REPORT INFORMATION
  Report Type: Spontaneous
  Country: US (occurrence: US)
  Receive Date: 20200115
  Receipt Date: 20200115
  Transmission Date: 20200409
  Serious: No
  Sender: FDA-Public Use
  Company Number: US-ELI_LILLY_AND_COMPANY-US202001006311

PATIENT
  Age: 75 Year
  Sex: Male

DRUGS (1)
  1. BAQSIMI [Suspect]
     Active Substance: GLUCAGON
     Indication: HYPOGLYCAEMIA
     Dosage: 1 DOSAGE FORM, SINGLE
     Route: 045

REACTIONS (3)
  - Taste disorder [Unknown]
  - Headache [Recovered/Resolved]
  - Nasal congestion [Unknown]
